APPROVED DRUG PRODUCT: RIFABUTIN
Active Ingredient: RIFABUTIN
Strength: 150MG
Dosage Form/Route: CAPSULE;ORAL
Application: A215041 | Product #001 | TE Code: AB
Applicant: NOVITIUM PHARMA LLC
Approved: Dec 17, 2021 | RLD: No | RS: No | Type: RX